FAERS Safety Report 5239839-1 (Version None)
Quarter: 2007Q1

REPORT INFORMATION
  Report Type: 
  Country: None (occurrence: None)
  Receive Date: 20070214
  Receipt Date: 20070214
  Transmission Date: 20070707
  Serious: Yes (Hospitalization)
  Sender: FDA-Public Use
  Company Number: None

PATIENT
  Sex: Male

DRUGS (11)
  1. DIGOXIN [Suspect]
     Dosage: 0.125 MG DAILY PO
     Route: 048
  2. WARFARIN [Concomitant]
  3. ALBUTEROL [Concomitant]
  4. COMBIVENT [Concomitant]
  5. RISPERDAL [Concomitant]
  6. METOCLOPRAMIDE [Concomitant]
  7. RANITIDINE [Concomitant]
  8. FERROUS SULFATE [Concomitant]
  9. DONEPEZIL HCL [Concomitant]
  10. GUAIFENSIN [Concomitant]
  11. POTASSIUM CHLORIDE [Concomitant]

REACTIONS (2)
  - BRADYCARDIA [None]
  - HYPOTENSION [None]
